FAERS Safety Report 18087444 (Version 2)
Quarter: 2020Q4

REPORT INFORMATION
  Report Type: Spontaneous
  Country: US (occurrence: US)
  Receive Date: 20200729
  Receipt Date: 20201029
  Transmission Date: 20210113
  Serious: Yes (Hospitalization, Other)
  Sender: FDA-Public Use
  Company Number: US-VERTEX PHARMACEUTICALS-2020-015316

PATIENT
  Age: 2 Year
  Sex: Female
  Weight: 10.48 kg

DRUGS (3)
  1. KALYDECO [Suspect]
     Active Substance: IVACAFTOR
     Indication: CYSTIC FIBROSIS
     Dosage: MIX 1 PACKET (50 MG TOTAL) INTO 5 ML OF SOFT FOOD OR LIQUID, BID
     Route: 048
  2. PULMOZYME [Concomitant]
     Active Substance: DORNASE ALFA
  3. KALYDECO [Suspect]
     Active Substance: IVACAFTOR
     Dosage: MIX 1 PACKET (50 MG TOTAL) INTO 5 ML OF SOFT FOOD OR LIQUID, BID
     Route: 048

REACTIONS (4)
  - Infection [Unknown]
  - Haemophilus infection [Unknown]
  - Stenotrophomonas infection [Unknown]
  - Tonsillectomy [Unknown]

NARRATIVE: CASE EVENT DATE: 20200709
